FAERS Safety Report 4346108-0 (Version None)
Quarter: 2004Q1

REPORT INFORMATION
  Report Type: 
  Country: None (occurrence: None)
  Receive Date: 20040325
  Receipt Date: 20040213
  Transmission Date: 20041129
  Serious: No
  Sender: FDA-Public Use
  Company Number: USA031254119

PATIENT
  Age: 60 Year
  Sex: Female

DRUGS (1)
  1. FORTEO [Suspect]
     Dates: start: 20030801

REACTIONS (4)
  - ASTHENIA [None]
  - CALCIUM IONISED INCREASED [None]
  - DIFFICULTY IN WALKING [None]
  - MYALGIA [None]
